FAERS Safety Report 7923624-3 (Version None)
Quarter: 2011Q4

REPORT INFORMATION
  Report Type: 
  Country: None (occurrence: None)
  Receive Date: 20111117
  Receipt Date: 20110207
  Transmission Date: 20120403
  Serious: No
  Sender: FDA-Public Use
  Company Number: US-AMGEN-USASP2011007363

PATIENT
  Age: 47 Year
  Sex: Female

DRUGS (1)
  1. ENBREL [Suspect]
     Indication: PSORIASIS
     Dates: start: 20110124

REACTIONS (5)
  - INJECTION SITE PRURITUS [None]
  - INJECTION SITE ERYTHEMA [None]
  - SKIN REACTION [None]
  - RASH MACULAR [None]
  - INJECTION SITE SWELLING [None]
